FAERS Safety Report 18676718 (Version 1)
Quarter: 2020Q4

REPORT INFORMATION
  Report Type: Spontaneous
  Country: CL (occurrence: CL)
  Receive Date: 20201229
  Receipt Date: 20201229
  Transmission Date: 20210114
  Serious: Yes (Hospitalization)
  Sender: FDA-Public Use
  Company Number: CL-PFIZER INC-2020498118

PATIENT
  Age: 43 Year
  Sex: Female

DRUGS (9)
  1. PLAQUINOL [Concomitant]
     Active Substance: HYDROXYCHLOROQUINE SULFATE
     Dosage: 1 DF, DAILY
  2. PREDNISONE. [Concomitant]
     Active Substance: PREDNISONE
     Dosage: 1 DF, 1X/DAY
  3. TRAMADOL. [Concomitant]
     Active Substance: TRAMADOL
     Dosage: 15 DROP (IN CASE OF EMERGENCY)
  4. AZULFIDINE [Concomitant]
     Active Substance: SULFASALAZINE
     Dosage: 4 DF, DAILY (2 DF IN THE MORNING, 2 DF IN THE EVENING)
  5. CELEBRA [Concomitant]
     Active Substance: CELECOXIB
     Dosage: 1 DF, EVER Y12 HOURS (IN CASE OF EMERGENY)
  6. PREGABALINE [Concomitant]
     Active Substance: PREGABALIN
     Dosage: 2 DF, DAILY (AT NIGHT)
  7. ELCAL-D [Concomitant]
     Active Substance: CALCIUM CARBONATE\CHOLECALCIFEROL
     Dosage: 1 DF, DAILY
  8. XELJANZ [Suspect]
     Active Substance: TOFACITINIB CITRATE
     Indication: RHEUMATOID ARTHRITIS
     Dosage: 2 DF, DAILY
     Dates: start: 202005
  9. CALCIUM [Concomitant]
     Active Substance: CALCIUM
     Dosage: 1 DF, DAILY

REACTIONS (4)
  - Femoroacetabular impingement [Recovered/Resolved]
  - Cartilage injury [Recovered/Resolved]
  - Spinal cord herniation [Recovered/Resolved]
  - Pain [Unknown]

NARRATIVE: CASE EVENT DATE: 20201222
